FAERS Safety Report 20998916 (Version 1)
Quarter: 2022Q2

REPORT INFORMATION
  Report Type: Spontaneous
  Country: US (occurrence: None)
  Receive Date: 20220622
  Receipt Date: 20220622
  Transmission Date: 20220720
  Serious: No
  Sender: FDA-Public Use
  Company Number: None

PATIENT
  Age: 25 Year
  Sex: Female

DRUGS (3)
  1. DUPIXENT [Suspect]
     Active Substance: DUPILUMAB
     Indication: Dermatitis atopic
     Dates: end: 20220117
  2. DUPIXENT [Suspect]
     Active Substance: DUPILUMAB
  3. DUPIXENT [Concomitant]
     Active Substance: DUPILUMAB

REACTIONS (5)
  - Injection site vesicles [None]
  - Injection site discolouration [None]
  - Vessel puncture site injury [None]
  - Injection site pain [None]
  - Wrong technique in product usage process [None]

NARRATIVE: CASE EVENT DATE: 20220621
